FAERS Safety Report 6233988-7 (Version None)
Quarter: 2009Q2

REPORT INFORMATION
  Report Type: 
  Country: None (occurrence: None)
  Receive Date: 20090612
  Receipt Date: 20090602
  Transmission Date: 20091009
  Serious: Yes (Other)
  Sender: FDA-Public Use
  Company Number: IN-WYE-H08999509

PATIENT
  Age: 76 Year
  Sex: Male

DRUGS (4)
  1. INOTUZUMAB OZOGAMICIN (INOTUZUMAB OZOGAMICIN, INJECTION) [Suspect]
     Indication: NON-HODGKIN'S LYMPHOMA
     Dosage: 3.24 MG 1X PER 1 DAY INTRAVENOUS
     Route: 042
     Dates: start: 20081001, end: 20090224
  2. RITUXAN/INOTUZUMAB OZOGAMICIN (RITUXIMAB/INOTUZUMAB OZOGAMICIN, INJECT [Suspect]
     Indication: NON-HODGKIN'S LYMPHOMA
     Dosage: 675 MG 1X PER 1 DAY INTRAVENOUS
     Route: 042
     Dates: start: 20080930, end: 20090223
  3. PROTEIN SUPPLEMENTS (PROTEIN SUPPLEMENTS) [Concomitant]
  4. METFORMIN HCL [Concomitant]

REACTIONS (8)
  - BLOOD ALKALINE PHOSPHATASE INCREASED [None]
  - BLOOD LACTATE DEHYDROGENASE INCREASED [None]
  - EXCORIATION [None]
  - HAEMOGLOBIN DECREASED [None]
  - HYPERBILIRUBINAEMIA [None]
  - HYPOCALCAEMIA [None]
  - HYPOKALAEMIA [None]
  - PLATELET COUNT DECREASED [None]
